FAERS Safety Report 8426823-X (Version None)
Quarter: 2012Q2

REPORT INFORMATION
  Report Type: 
  Country: None (occurrence: None)
  Receive Date: 20120611
  Receipt Date: 20120601
  Transmission Date: 20120825
  Serious: Yes (Other)
  Sender: FDA-Public Use
  Company Number: US-ABBOTT-12P-163-0941587-00

PATIENT
  Sex: Female

DRUGS (6)
  1. SYNTHROID [Suspect]
     Indication: AUTOIMMUNE THYROIDITIS
     Dosage: 225 MCG DAILY
     Dates: start: 19660101
  2. CYTOMEL [Concomitant]
     Indication: PRODUCT USED FOR UNKNOWN INDICATION
  3. SYNTHROID [Suspect]
     Dosage: 112 MCG DAILY
     Dates: end: 20090101
  4. LEVOXYL [Suspect]
     Indication: PRODUCT USED FOR UNKNOWN INDICATION
     Dates: start: 20090101, end: 20100101
  5. DIOVAN [Concomitant]
     Indication: PRODUCT USED FOR UNKNOWN INDICATION
  6. CARDIZEM [Concomitant]
     Indication: PRODUCT USED FOR UNKNOWN INDICATION

REACTIONS (11)
  - MALAISE [None]
  - SURGERY [None]
  - ARTHRITIS [None]
  - AUTOIMMUNE DISORDER [None]
  - MYOCARDIAL INFARCTION [None]
  - ROSACEA [None]
  - HEREDITARY DISORDER [None]
  - THYROID DISORDER [None]
  - MIGRAINE [None]
  - BLOOD THYROID STIMULATING HORMONE ABNORMAL [None]
  - INFECTION [None]
